FAERS Safety Report 18951428 (Version 2)
Quarter: 2021Q1

REPORT INFORMATION
  Report Type: Spontaneous
  Country: US (occurrence: US)
  Receive Date: 20210301
  Receipt Date: 20210309
  Transmission Date: 20210420
  Serious: Yes (Other)
  Sender: FDA-Public Use
  Company Number: US-JNJFOC-20210242402

PATIENT
  Sex: Male

DRUGS (2)
  1. RISPERDAL [Suspect]
     Active Substance: RISPERIDONE
     Indication: SCHIZOPHRENIA
     Route: 065
  2. RISPERIDONE. [Suspect]
     Active Substance: RISPERIDONE
     Indication: SCHIZOPHRENIA
     Route: 065

REACTIONS (11)
  - Thrombosis [Unknown]
  - Aphasia [Unknown]
  - Gynaecomastia [Unknown]
  - Injury [Unknown]
  - Overdose [Unknown]
  - Thinking abnormal [Unknown]
  - Tearfulness [Unknown]
  - General physical health deterioration [Unknown]
  - Adverse drug reaction [Unknown]
  - Haemorrhage [Unknown]
  - Cholecystectomy [Unknown]

NARRATIVE: CASE EVENT DATE: 20210302
